FAERS Safety Report 4338774-0 (Version None)
Quarter: 2004Q2

REPORT INFORMATION
  Report Type: 
  Country: None (occurrence: None)
  Receive Date: 20040409
  Receipt Date: 20040325
  Transmission Date: 20050107
  Serious: Yes (Hospitalization)
  Sender: FDA-Public Use
  Company Number: 2000277

PATIENT
  Age: 57 Year
  Sex: Male
  Weight: 65 kg

DRUGS (9)
  1. KEPPRA [Suspect]
     Indication: EPILEPSY
     Dosage: 250 MG /D PO
     Route: 048
     Dates: start: 20010304, end: 20010418
  2. KEPPRA [Suspect]
     Indication: EPILEPSY
     Dosage: 250 MG 2/D PO
     Route: 048
     Dates: start: 20010419, end: 20010427
  3. TEGRETOL [Concomitant]
  4. NEURONTIN [Concomitant]
  5. SYNTHROID [Concomitant]
  6. DARVOCET-N 100 [Concomitant]
  7. LASIX [Concomitant]
  8. COLACE [Concomitant]
  9. ASCORBIC ACID [Concomitant]

REACTIONS (22)
  - ABDOMINAL RIGIDITY [None]
  - ASTHENIA [None]
  - ATAXIA [None]
  - AUTONOMIC NERVOUS SYSTEM IMBALANCE [None]
  - BLOOD CREATINE PHOSPHOKINASE INCREASED [None]
  - CONDITION AGGRAVATED [None]
  - CONVULSION [None]
  - DEPRESSION [None]
  - DYSPNOEA [None]
  - DYSTONIA [None]
  - HYPERHIDROSIS [None]
  - HYPOREFLEXIA [None]
  - MYELOPATHY [None]
  - PAIN IN EXTREMITY [None]
  - PARAPLEGIA [None]
  - PARKINSON'S DISEASE [None]
  - SCOLIOSIS [None]
  - SPEECH DISORDER [None]
  - TACHYCARDIA [None]
  - TENDERNESS [None]
  - THERAPY NON-RESPONDER [None]
  - URINARY RETENTION [None]
